FAERS Safety Report 17419071 (Version 3)
Quarter: 2020Q2

REPORT INFORMATION
  Report Type: Report from Study
  Country: US (occurrence: US)
  Receive Date: 20200214
  Receipt Date: 20200406
  Transmission Date: 20200713
  Serious: Yes (Hospitalization, Other)
  Sender: FDA-Public Use
  Company Number: NVSC2020US040212

PATIENT
  Age: 84 Year
  Sex: Male

DRUGS (2)
  1. ENTRESTO [Suspect]
     Active Substance: SACUBITRIL\VALSARTAN
     Indication: CARDIAC FAILURE CHRONIC
     Dosage: UNK, BID (FULL TABLET IN MORNING AND HALF TABLET NIGHT, BID)
     Route: 065
  2. ENTRESTO [Suspect]
     Active Substance: SACUBITRIL\VALSARTAN
     Indication: CARDIAC FAILURE CONGESTIVE
     Dosage: 1 DF, BID (24MG SACUBITRIL /26MGVALSARTAN)
     Route: 048
     Dates: start: 2017

REACTIONS (10)
  - Asthenia [Not Recovered/Not Resolved]
  - Myocardial infarction [Recovering/Resolving]
  - Fall [Not Recovered/Not Resolved]
  - Rash [Recovered/Resolved]
  - Fluid overload [Recovering/Resolving]
  - Hepatic enzyme increased [Recovering/Resolving]
  - Weight increased [Unknown]
  - Upper respiratory tract infection [Recovered/Resolved]
  - Wrong technique in product usage process [Unknown]
  - Product prescribing error [Unknown]

NARRATIVE: CASE EVENT DATE: 201912
